FAERS Safety Report 9608478 (Version 1)
Quarter: 2013Q4

REPORT INFORMATION
  Report Type: Spontaneous
  Country: IT (occurrence: IT)
  Receive Date: 20131009
  Receipt Date: 20131009
  Transmission Date: 20140711
  Serious: Yes (Hospitalization)
  Sender: FDA-Public Use
  Company Number: IT-JNJFOC-20131003553

PATIENT
  Age: 89 Year
  Sex: Female

DRUGS (8)
  1. SERENASE [Suspect]
     Indication: DEPRESSION
     Route: 048
     Dates: start: 20130812
  2. DEPONIT [Concomitant]
     Indication: PRODUCT USED FOR UNKNOWN INDICATION
     Route: 062
  3. RAMIPRIL [Concomitant]
     Indication: PRODUCT USED FOR UNKNOWN INDICATION
     Route: 048
  4. DELORAZEPAM [Concomitant]
     Indication: DEPRESSION
     Route: 048
     Dates: start: 20130812
  5. LANSOPRAZOLE [Concomitant]
     Indication: PRODUCT USED FOR UNKNOWN INDICATION
     Route: 048
  6. VERTISERC [Concomitant]
     Indication: VERTIGO
     Route: 048
     Dates: start: 20130812
  7. JUMEX [Concomitant]
     Indication: PRODUCT USED FOR UNKNOWN INDICATION
     Route: 048
  8. EUTIROX [Concomitant]
     Indication: PRODUCT USED FOR UNKNOWN INDICATION
     Route: 048

REACTIONS (7)
  - Dehydration [Recovered/Resolved]
  - Toxicity to various agents [Recovered/Resolved]
  - Hypochloraemia [Recovered/Resolved]
  - Hyponatraemic syndrome [Recovered/Resolved]
  - Urinary retention [Recovered/Resolved]
  - Sopor [Recovered/Resolved]
  - Off label use [Unknown]
